FAERS Safety Report 10341530 (Version 1)
Quarter: 2014Q3

REPORT INFORMATION
  Report Type: Spontaneous
  Country: US (occurrence: None)
  Receive Date: 20140724
  Receipt Date: 20140724
  Transmission Date: 20150326
  Serious: Yes (Death)
  Sender: FDA-Public Use
  Company Number: None

PATIENT
  Age: 51 Year
  Sex: Male

DRUGS (7)
  1. AMLODIPINE [Concomitant]
     Active Substance: AMLODIPINE BESYLATE
  2. METOPROLOL [Concomitant]
     Active Substance: METOPROLOL
  3. REVLIMID [Suspect]
     Active Substance: LENALIDOMIDE
     Indication: PLASMA CELL MYELOMA
     Route: 048
     Dates: start: 201406, end: 201407
  4. ASA [Concomitant]
     Active Substance: ASPIRIN
  5. ATORVASTATIN [Concomitant]
     Active Substance: ATORVASTATIN
  6. ACYCLOVIR. [Concomitant]
     Active Substance: ACYCLOVIR
  7. DEXAMETHASONE. [Concomitant]
     Active Substance: DEXAMETHASONE

REACTIONS (8)
  - Liver function test abnormal [None]
  - Pleural effusion [None]
  - Hypotension [None]
  - Malaise [None]
  - Dyspnoea [None]
  - Tachycardia [None]
  - Tumour lysis syndrome [None]
  - Mental status changes [None]

NARRATIVE: CASE EVENT DATE: 20140721
